FAERS Safety Report 7561022-5 (Version None)
Quarter: 2011Q2

REPORT INFORMATION
  Report Type: 
  Country: None (occurrence: None)
  Receive Date: 20110621
  Receipt Date: 20101216
  Transmission Date: 20111010
  Serious: No
  Sender: FDA-Public Use
  Company Number: US-ASTRAZENECA-2010SE59910

PATIENT
  Age: 70 Year
  Sex: Male

DRUGS (2)
  1. ATACAND HCT [Suspect]
     Dosage: 16+12.5 MG BID
     Route: 048
  2. ATACAND HCT [Suspect]
     Dosage: 16+12.5 MG QD
     Route: 048

REACTIONS (2)
  - HYPERTENSION [None]
  - DRUG EFFECT DECREASED [None]
